FAERS Safety Report 6440504-3 (Version None)
Quarter: 2009Q4

REPORT INFORMATION
  Report Type: 
  Country: None (occurrence: None)
  Receive Date: 20091113
  Receipt Date: 20091104
  Transmission Date: 20100525
  Serious: Yes (Other)
  Sender: FDA-Public Use
  Company Number: US-BAUSCH-2009BL004596

PATIENT
  Age: 19 Year
  Sex: Male

DRUGS (7)
  1. NEOMYCIN AND POLYMXIN B SULFATES AND HYDROCORTISONE [Suspect]
     Route: 047
     Dates: start: 20090601, end: 20090601
  2. OXYCONTIN [Concomitant]
     Indication: PAIN
     Route: 048
  3. FENTANYL-100 [Concomitant]
     Indication: PAIN
     Route: 061
  4. PREGABALIN [Concomitant]
     Indication: NEURALGIA
     Route: 048
  5. CELEBREX [Concomitant]
     Indication: PAIN
     Route: 048
     Dates: start: 20090901
  6. CYMBALTA [Concomitant]
     Indication: PAIN
     Route: 048
     Dates: start: 20090901
  7. HYDROCODONE [Concomitant]
     Indication: BREAKTHROUGH PAIN
     Route: 048
     Dates: start: 20090901

REACTIONS (5)
  - COLOUR BLINDNESS ACQUIRED [None]
  - EYE IRRITATION [None]
  - OPTIC NERVE INJURY [None]
  - VISUAL ACUITY REDUCED [None]
  - WRONG DRUG ADMINISTERED [None]
